FAERS Safety Report 5478386-9 (Version None)
Quarter: 2007Q4

REPORT INFORMATION
  Report Type: 
  Country: None (occurrence: None)
  Receive Date: 20071005
  Receipt Date: 20070926
  Transmission Date: 20080405
  Serious: Yes (Hospitalization)
  Sender: FDA-Public Use
  Company Number: B0488888A

PATIENT
  Age: 58 Year
  Sex: Female

DRUGS (6)
  1. AVANDAMET [Suspect]
     Route: 048
     Dates: start: 20060601, end: 20070628
  2. LOXEN [Concomitant]
     Route: 048
  3. COAPROVEL [Concomitant]
     Route: 065
  4. ALLOPURINOL [Concomitant]
     Route: 065
  5. ATENOLOL [Concomitant]
     Route: 065
  6. DIAMICRON [Concomitant]
     Route: 048

REACTIONS (10)
  - DERMATITIS [None]
  - DRY SKIN [None]
  - ECZEMA [None]
  - EXCORIATION [None]
  - PRURIGO [None]
  - PRURITUS [None]
  - RASH PAPULAR [None]
  - RASH VESICULAR [None]
  - SKIN LESION [None]
  - TOXIC SKIN ERUPTION [None]
